FAERS Safety Report 7380140-8 (Version None)
Quarter: 2011Q1

REPORT INFORMATION
  Report Type: 
  Country: None (occurrence: None)
  Receive Date: 20110329
  Receipt Date: 20100816
  Transmission Date: 20110831
  Serious: No
  Sender: FDA-Public Use
  Company Number: US-MYLANLABS-2010S1013142

PATIENT
  Age: 67 Year
  Sex: Female

DRUGS (6)
  1. GLYBURIDE AND METFORMIN HYDROCHLORIDE [Concomitant]
  2. LEVOTHYROXINE [Concomitant]
  3. MULTI-VITAMINS [Concomitant]
  4. ESTRADIOL [Suspect]
     Indication: HORMONE REPLACEMENT THERAPY
     Route: 062
     Dates: start: 20080101
  5. NIACIN [Concomitant]
  6. ASPIRIN [Concomitant]

REACTIONS (3)
  - APPLICATION SITE ERYTHEMA [None]
  - HOT FLUSH [None]
  - ABDOMINAL DISTENSION [None]
